FAERS Safety Report 16480271 (Version 1)
Quarter: 2019Q2

REPORT INFORMATION
  Report Type: Spontaneous
  Country: DE (occurrence: DE)
  Receive Date: 20190626
  Receipt Date: 20190626
  Transmission Date: 20190711
  Serious: Yes (Other)
  Sender: FDA-Public Use
  Company Number: DE-ASTRAZENECA-2019SE90399

PATIENT
  Sex: Male

DRUGS (1)
  1. FASENRA [Suspect]
     Active Substance: BENRALIZUMAB
     Dosage: UNKNOWN
     Route: 058
     Dates: start: 201808

REACTIONS (5)
  - Bronchopulmonary aspergillosis allergic [Unknown]
  - Condition aggravated [Unknown]
  - Drug ineffective [Unknown]
  - Blood immunoglobulin E increased [Unknown]
  - Lung infiltration [Unknown]
